FAERS Safety Report 8880254 (Version 1)
Quarter: 2012Q4

REPORT INFORMATION
  Report Type: 
  Country: US (occurrence: US)
  Receive Date: 20121031
  Receipt Date: 20121031
  Transmission Date: 20130627
  Serious: Yes (Other)
  Sender: FDA-Public Use
  Company Number: US-ASTRAZENECA-2012SE55213

PATIENT
  Age: 63 Year
  Sex: Male
  Weight: 122.5 kg

DRUGS (5)
  1. SYMBICORT [Suspect]
     Indication: CHRONIC OBSTRUCTIVE PULMONARY DISEASE
     Dosage: 160/4.5 MCG, TWO TIMES A DAY
     Route: 055
  2. SPIRIVA [Concomitant]
     Dosage: DAILY
  3. BLOOD PRESSURE MEDICATION [Concomitant]
  4. BLOOD THINNER [Concomitant]
  5. DIABETES PILL [Concomitant]

REACTIONS (3)
  - Myocardial infarction [Unknown]
  - Diabetes mellitus [Unknown]
  - Cough [Unknown]
